FAERS Safety Report 9785445 (Version 1)
Quarter: 2013Q4

REPORT INFORMATION
  Report Type: Spontaneous
  Country: US (occurrence: US)
  Receive Date: 20131227
  Receipt Date: 20131227
  Transmission Date: 20140711
  Serious: Yes (Life-Threatening, Hospitalization, Other)
  Sender: FDA-Public Use
  Company Number: US-NAPPMUNDI-USA-2013-0109820

PATIENT
  Sex: Female

DRUGS (4)
  1. OXYCONTIN (NDA 22-272) [Suspect]
     Indication: BACK PAIN
     Dosage: 60 MG, BID
     Route: 048
     Dates: start: 2013, end: 201307
  2. OXYCONTIN (NDA 22-272) [Suspect]
     Indication: ARTHRALGIA
     Dosage: 80 MG, BID
     Route: 048
     Dates: start: 201307, end: 201309
  3. OXYCONTIN (NDA 22-272) [Suspect]
     Dosage: 160 MG, DAILY
     Route: 048
     Dates: start: 201310
  4. OXYCODONE HYDROCHLORIDE (SIMILAR TO NDA 22-272) [Concomitant]
     Indication: BREAKTHROUGH PAIN
     Dosage: 30 MG, BID PRN

REACTIONS (4)
  - Appendicectomy [Recovered/Resolved]
  - Respiratory arrest [Recovered/Resolved]
  - Drug level increased [Recovered/Resolved]
  - Drug ineffective [Not Recovered/Not Resolved]
